FAERS Safety Report 4774910-X (Version None)
Quarter: 2005Q3

REPORT INFORMATION
  Report Type: 
  Country: None (occurrence: None)
  Receive Date: 20050921
  Receipt Date: 20050909
  Transmission Date: 20060218
  Serious: Yes (Other)
  Sender: FDA-Public Use
  Company Number: MY-BRISTOL-MYERS SQUIBB COMPANY-13105622

PATIENT
  Age: 37 Year
  Sex: Female

DRUGS (5)
  1. FUNGIZONE [Suspect]
     Indication: MENINGITIS CRYPTOCOCCAL
     Route: 042
  2. CEFOPERAZONE SODIUM+SULBACTAM [Concomitant]
  3. CEFTRIAXONE [Concomitant]
  4. ACYCLOVIR [Concomitant]
  5. PHENYTOIN [Concomitant]

REACTIONS (1)
  - HEPATITIS [None]
